FAERS Safety Report 4806958-0 (Version None)
Quarter: 2005Q4

REPORT INFORMATION
  Report Type: 
  Country: None (occurrence: None)
  Receive Date: 20051019
  Receipt Date: 20051005
  Transmission Date: 20060501
  Serious: Yes (Other)
  Sender: FDA-Public Use
  Company Number: DE_051017126

PATIENT
  Age: 77 Year
  Sex: Female

DRUGS (5)
  1. CYMBALTA [Suspect]
     Indication: DEPRESSION
     Dosage: 60 MG DAY
     Dates: start: 20050921, end: 20050928
  2. MADOPAR [Concomitant]
  3. AMANTADINE HCL [Concomitant]
  4. ISMN (ISOSORBIDE NONONITRATE) [Concomitant]
  5. METOPROLOL RETARD (METOPROLOL TARTRATE) [Concomitant]

REACTIONS (1)
  - MOBILITY DECREASED [None]
